FAERS Safety Report 7158147-5 (Version None)
Quarter: 2010Q4

REPORT INFORMATION
  Report Type: 
  Country: None (occurrence: None)
  Receive Date: 20101214
  Receipt Date: 20100503
  Transmission Date: 20110411
  Serious: No
  Sender: FDA-Public Use
  Company Number: US-ASTRAZENECA-2010SE19949

PATIENT
  Age: 875 Month
  Sex: Female
  Weight: 74.4 kg

DRUGS (6)
  1. CRESTOR [Suspect]
     Indication: BLOOD CHOLESTEROL INCREASED
     Route: 048
     Dates: start: 20070101, end: 20100301
  2. CRESTOR [Suspect]
     Route: 048
     Dates: start: 20100301, end: 20100301
  3. CRESTOR [Suspect]
     Route: 048
     Dates: start: 20100301
  4. ATENOLOL [Concomitant]
  5. BENECAR [Concomitant]
  6. CALCIUM [Concomitant]

REACTIONS (5)
  - FALL [None]
  - FATIGUE [None]
  - LOW DENSITY LIPOPROTEIN INCREASED [None]
  - PAIN IN EXTREMITY [None]
  - WRONG TECHNIQUE IN DRUG USAGE PROCESS [None]
